FAERS Safety Report 8008532-4 (Version None)
Quarter: 2011Q4

REPORT INFORMATION
  Report Type: 
  Country: None (occurrence: None)
  Receive Date: 20111227
  Receipt Date: 20111214
  Transmission Date: 20120403
  Serious: Yes (Hospitalization)
  Sender: FDA-Public Use
  Company Number: FR-ROCHE-1022128

PATIENT
  Age: 48 Year
  Sex: Female

DRUGS (2)
  1. REBETOL [Suspect]
     Indication: HEPATITIS C
  2. PEGASYS [Suspect]
     Indication: HEPATITIS C
     Dates: start: 20100201, end: 20100403

REACTIONS (5)
  - VOMITING [None]
  - MYALGIA [None]
  - HYPOTENSION [None]
  - CHILLS [None]
  - PYREXIA [None]
